FAERS Safety Report 6156853-2 (Version None)
Quarter: 2009Q2

REPORT INFORMATION
  Report Type: 
  Country: None (occurrence: None)
  Receive Date: 20090413
  Receipt Date: 20090128
  Transmission Date: 20091009
  Serious: No
  Sender: FDA-Public Use
  Company Number: 2009BM000023

PATIENT
  Age: 37 Year
  Sex: Female
  Weight: 75.8414 kg

DRUGS (2)
  1. KUVAN [Suspect]
     Indication: PHENYLKETONURIA
     Dosage: 1500 MG;QD;PO; 1500 MG;QD;PO
     Route: 048
     Dates: start: 20080922, end: 20081201
  2. KUVAN [Suspect]
     Indication: PHENYLKETONURIA
     Dosage: 1500 MG;QD;PO; 1500 MG;QD;PO
     Route: 048
     Dates: start: 20090101, end: 20090127

REACTIONS (1)
  - LETHARGY [None]
